FAERS Safety Report 9096612 (Version 1)
Quarter: 2013Q1

REPORT INFORMATION
  Report Type: Spontaneous
  Country: JP (occurrence: JP)
  Receive Date: 20130211
  Receipt Date: 20130211
  Transmission Date: 20140127
  Serious: Yes (Life-Threatening, Hospitalization)
  Sender: FDA-Public Use
  Company Number: JP-SANOFI-AVENTIS-2012SA089784

PATIENT
  Age: 62 Year
  Sex: Male
  Weight: 61.8 kg

DRUGS (9)
  1. PLAVIX [Suspect]
     Indication: ACUTE MYOCARDIAL INFARCTION
     Route: 048
     Dates: start: 20121106, end: 20121122
  2. BAYASPIRIN [Concomitant]
     Indication: ACUTE MYOCARDIAL INFARCTION
     Route: 048
     Dates: start: 20121106
  3. ITAVASTATIN [Concomitant]
     Indication: DYSLIPIDAEMIA
     Route: 048
     Dates: start: 20121106, end: 20121122
  4. OLMETEC [Concomitant]
     Indication: HYPERTENSION
     Route: 048
     Dates: start: 20121106, end: 20121122
  5. ESOMEPRAZOLE [Concomitant]
     Indication: PROPHYLAXIS
     Route: 048
     Dates: start: 20121106, end: 20121122
  6. ARTIST [Concomitant]
     Indication: CARDIAC FAILURE CHRONIC
     Route: 048
     Dates: start: 20121106, end: 20121122
  7. MAGLAX [Concomitant]
     Indication: CONSTIPATION
     Route: 048
     Dates: start: 20121106, end: 20121122
  8. SIGMART [Concomitant]
     Indication: ANGINA PECTORIS
     Route: 048
     Dates: start: 20121106, end: 20121122
  9. ADALAT CR [Concomitant]
     Indication: HYPERTENSION
     Route: 048
     Dates: start: 20121110, end: 20121122

REACTIONS (5)
  - Cardio-respiratory arrest [Unknown]
  - Shock [Unknown]
  - Infection [Unknown]
  - Granulocyte count decreased [Recovering/Resolving]
  - Pyrexia [Unknown]
